FAERS Safety Report 10920276 (Version 5)
Quarter: 2015Q2

REPORT INFORMATION
  Report Type: Report from Study
  Country: US (occurrence: US)
  Receive Date: 20150317
  Receipt Date: 20150605
  Transmission Date: 20150821
  Serious: Yes (Hospitalization)
  Sender: FDA-Public Use
  Company Number: US-BIOGENIDEC-2015BI031809

PATIENT
  Age: 50 Year
  Sex: Female

DRUGS (3)
  1. AMPYRA [Concomitant]
     Active Substance: DALFAMPRIDINE
  2. TYSABRI [Suspect]
     Active Substance: NATALIZUMAB
     Indication: MULTIPLE SCLEROSIS
     Route: 042
  3. TYSABRI [Suspect]
     Active Substance: NATALIZUMAB
     Indication: MULTIPLE SCLEROSIS
     Route: 042
     Dates: start: 20070810

REACTIONS (7)
  - Pyrexia [Unknown]
  - Procedural complication [Recovered/Resolved]
  - Peritonitis [Recovered/Resolved]
  - Infection [Recovered/Resolved]
  - Device related infection [Not Recovered/Not Resolved]
  - Bladder catheterisation [Unknown]
  - Cystostomy [Recovered/Resolved]

NARRATIVE: CASE EVENT DATE: 20150211
